FAERS Safety Report 18794202 (Version 1)
Quarter: 2021Q1

REPORT INFORMATION
  Report Type: Spontaneous
  Country: US (occurrence: US)
  Receive Date: 20210127
  Receipt Date: 20210127
  Transmission Date: 20210419
  Serious: Yes (Other)
  Sender: FDA-Public Use
  Company Number: None

PATIENT
  Age: 51 Year
  Sex: Female
  Weight: 81 kg

DRUGS (6)
  1. PREMPHASE [Suspect]
     Active Substance: ESTROGENS, CONJUGATED\MEDROXYPROGESTERONE ACETATE
     Indication: HORMONE REPLACEMENT THERAPY
     Dosage: ?          QUANTITY:1 TABLET(S);?
     Route: 048
  2. OXYCODONE [Concomitant]
     Active Substance: OXYCODONE
  3. PHENTERMINE. [Concomitant]
     Active Substance: PHENTERMINE
  4. FLONASE [Concomitant]
     Active Substance: FLUTICASONE PROPIONATE
  5. RAMELTEON [Concomitant]
     Active Substance: RAMELTEON
  6. MULTIVITAMIN [Concomitant]
     Active Substance: VITAMINS

REACTIONS (2)
  - Invasive ductal breast carcinoma [None]
  - Breast mass [None]

NARRATIVE: CASE EVENT DATE: 20201230
